FAERS Safety Report 5992893-1 (Version None)
Quarter: 2008Q4

REPORT INFORMATION
  Report Type: 
  Country: None (occurrence: None)
  Receive Date: 20081212
  Receipt Date: 20081117
  Transmission Date: 20090506
  Serious: No
  Sender: FDA-Public Use
  Company Number: US-BAYER-200832879NA

PATIENT
  Age: 55 Year
  Sex: Female

DRUGS (1)
  1. MAGNEVIST [Suspect]
     Indication: DRUG USE FOR UNKNOWN INDICATION
     Dates: start: 20080821, end: 20080821

REACTIONS (3)
  - PRURITUS [None]
  - URTICARIA [None]
  - WHEEZING [None]
